FAERS Safety Report 17715725 (Version 2)
Quarter: 2020Q2

REPORT INFORMATION
  Report Type: Spontaneous
  Country: CA (occurrence: CA)
  Receive Date: 20200427
  Receipt Date: 20200622
  Transmission Date: 20200714
  Serious: Yes (Death, Hospitalization, Other)
  Sender: FDA-Public Use
  Company Number: CA-BAXTER-2020BAX008412

PATIENT
  Age: 31 Year
  Sex: Female

DRUGS (48)
  1. PROPOFOL. [Suspect]
     Active Substance: PROPOFOL
     Dosage: DOSAGE FORM: EMULSION
     Route: 065
  2. ATIVAN [Suspect]
     Active Substance: LORAZEPAM
     Indication: STATUS EPILEPTICUS
     Dosage: DOSAGE FORM: NOT SPECIFIED
     Route: 065
  3. MIDAZOLAM HYDROCHLORIDE. [Suspect]
     Active Substance: MIDAZOLAM HYDROCHLORIDE
     Indication: STATUS EPILEPTICUS
     Route: 065
  4. MIDAZOLAM HYDROCHLORIDE. [Suspect]
     Active Substance: MIDAZOLAM HYDROCHLORIDE
     Indication: FOETAL EXPOSURE DURING PREGNANCY
     Route: 065
  5. PHENYTOIN. [Suspect]
     Active Substance: PHENYTOIN
     Indication: FOETAL EXPOSURE DURING PREGNANCY
     Route: 065
  6. SODIUM CITRATE. [Suspect]
     Active Substance: SODIUM CITRATE
     Indication: FOETAL EXPOSURE DURING PREGNANCY
     Dosage: DOSAGE FORM: NOT SPECIFIED
     Route: 065
  7. THIOPENTAL SODIUM. [Suspect]
     Active Substance: THIOPENTAL SODIUM
     Indication: STATUS EPILEPTICUS
     Dosage: DOSAGE FORM: NOT SPECIFIED
     Route: 042
  8. THIOPENTAL SODIUM. [Suspect]
     Active Substance: THIOPENTAL SODIUM
     Indication: PRODUCT USED FOR UNKNOWN INDICATION
     Dosage: DOSAGE FORM: NOT SPECIFIED
     Route: 042
  9. PROPOFOL. [Suspect]
     Active Substance: PROPOFOL
     Indication: STATUS EPILEPTICUS
     Route: 042
  10. ATIVAN [Suspect]
     Active Substance: LORAZEPAM
     Indication: BIPOLAR DISORDER
     Dosage: DOSAGE FORM: NOT SPECIFIED
     Route: 065
  11. ATIVAN [Suspect]
     Active Substance: LORAZEPAM
     Indication: FOETAL EXPOSURE DURING PREGNANCY
     Dosage: DOSAGE FORM: NOT SPECIFIED
     Route: 065
  12. DIAZEPAM. [Suspect]
     Active Substance: DIAZEPAM
     Indication: SEIZURE
     Dosage: DOSAGE FORM: NOT SPECIFIED
     Route: 065
  13. METOCLOPRAMIDE. [Suspect]
     Active Substance: METOCLOPRAMIDE
     Indication: FOETAL EXPOSURE DURING PREGNANCY
     Route: 065
  14. THIOPENTAL [Suspect]
     Active Substance: THIOPENTAL
     Route: 042
  15. PROPOFOL. [Suspect]
     Active Substance: PROPOFOL
     Route: 042
  16. MAGNESIUM SULFATE. [Suspect]
     Active Substance: MAGNESIUM SULFATE
     Indication: FOETAL EXPOSURE DURING PREGNANCY
     Dosage: DOSAGE FORM: NOT SPECIFIED
     Route: 065
  17. PAROXETINE HYDROCHLORIDE. [Suspect]
     Active Substance: PAROXETINE HYDROCHLORIDE
     Indication: FOETAL EXPOSURE DURING PREGNANCY
     Route: 065
  18. PHENYTOIN. [Suspect]
     Active Substance: PHENYTOIN
     Indication: STATUS EPILEPTICUS
     Route: 065
  19. THIOPENTAL [Suspect]
     Active Substance: THIOPENTAL
     Route: 042
  20. THIOPENTAL [Suspect]
     Active Substance: THIOPENTAL
     Route: 042
  21. MAGNESIUM SULFATE. [Suspect]
     Active Substance: MAGNESIUM SULFATE
     Indication: STATUS EPILEPTICUS
     Dosage: DOSAGE FORM: NOT SPECIFIED
     Route: 065
  22. SODIUM CITRATE. [Suspect]
     Active Substance: SODIUM CITRATE
     Indication: PROPHYLAXIS
     Dosage: DOSAGE FORM: NOT SPECIFIED
     Route: 048
  23. THIOPENTAL [Suspect]
     Active Substance: THIOPENTAL
     Route: 042
  24. 5% DEXTROSE INJECTION [Suspect]
     Active Substance: DEXTROSE
     Indication: FOETAL EXPOSURE DURING PREGNANCY
     Dosage: DOSAGE FORM: NOT SPECIFIED
     Route: 042
  25. PAROXETINE HYDROCHLORIDE. [Suspect]
     Active Substance: PAROXETINE HYDROCHLORIDE
     Indication: BIPOLAR DISORDER
     Dosage: DOSAGE FORM: TABLETS
     Route: 065
  26. PHENYTOIN. [Suspect]
     Active Substance: PHENYTOIN
     Indication: SEIZURE
     Route: 065
  27. THIOPENTAL [Suspect]
     Active Substance: THIOPENTAL
     Indication: ENDOTRACHEAL INTUBATION
     Route: 042
  28. THIOPENTAL [Suspect]
     Active Substance: THIOPENTAL
     Route: 042
  29. THIOPENTAL [Suspect]
     Active Substance: THIOPENTAL
     Route: 042
  30. SUCCINYLCHOLINE [Suspect]
     Active Substance: SUCCINYLCHOLINE
     Indication: FOETAL EXPOSURE DURING PREGNANCY
     Route: 042
  31. 5% DEXTROSE INJECTION [Suspect]
     Active Substance: DEXTROSE
     Indication: PRODUCT USED FOR UNKNOWN INDICATION
     Dosage: DOSAGE FORM: NOT SPECIFIED
     Route: 042
  32. PROPOFOL. [Suspect]
     Active Substance: PROPOFOL
     Indication: FOETAL EXPOSURE DURING PREGNANCY
     Route: 042
  33. DIAZEPAM. [Suspect]
     Active Substance: DIAZEPAM
     Indication: STATUS EPILEPTICUS
     Dosage: DOSAGE FORM: NOT SPECIFIED
     Route: 065
  34. THIOPENTAL SODIUM. [Suspect]
     Active Substance: THIOPENTAL SODIUM
     Indication: ENDOTRACHEAL INTUBATION
     Dosage: DOSAGE FORM: NOT SPECIFIED
     Route: 042
  35. THIOPENTAL SODIUM. [Suspect]
     Active Substance: THIOPENTAL SODIUM
     Indication: FOETAL EXPOSURE DURING PREGNANCY
  36. THIOPENTAL [Suspect]
     Active Substance: THIOPENTAL
     Indication: STATUS EPILEPTICUS
     Route: 042
  37. THIOPENTAL [Suspect]
     Active Substance: THIOPENTAL
     Route: 042
  38. LORAZEPAM. [Suspect]
     Active Substance: LORAZEPAM
     Indication: STATUS EPILEPTICUS
     Dosage: DOSAGE FORM: NOT SPECIFIED
     Route: 065
  39. SUCCINYLCHOLINE CHLORIDE. [Suspect]
     Active Substance: SUCCINYLCHOLINE CHLORIDE
     Indication: ENDOTRACHEAL INTUBATION
     Dosage: DOSAGE FORM: LIQUID INTRAVENOUS
     Route: 042
  40. THIOPENTAL [Suspect]
     Active Substance: THIOPENTAL
     Route: 042
  41. SUCCINYLCHOLINE [Suspect]
     Active Substance: SUCCINYLCHOLINE
     Indication: ENDOTRACHEAL INTUBATION
     Route: 065
  42. DIAZEPAM. [Suspect]
     Active Substance: DIAZEPAM
     Indication: FOETAL EXPOSURE DURING PREGNANCY
     Dosage: DOSAGE FORM: NOT SPECIFIED
     Route: 065
  43. METOCLOPRAMIDE. [Suspect]
     Active Substance: METOCLOPRAMIDE
     Indication: PROPHYLAXIS
     Route: 042
  44. CALCIUM CHLORIDE. [Suspect]
     Active Substance: CALCIUM CHLORIDE
     Indication: PRODUCT USED FOR UNKNOWN INDICATION
     Dosage: DOSAGE FORM: NOT SPECIFIED
     Route: 065
  45. DOPAMINE HCL [Suspect]
     Active Substance: DOPAMINE HYDROCHLORIDE
     Indication: PRODUCT USED FOR UNKNOWN INDICATION
     Dosage: DOSAGE FORM: NOT SPECIFIED
     Route: 065
  46. PHENYLEPHRINE [Suspect]
     Active Substance: PHENYLEPHRINE HYDROCHLORIDE
     Indication: HYPOTENSION
     Dosage: DOSAGE FORM: SOLUTION OPHTHALMIC
     Route: 065
  47. SUCCINYLCHOLINE CHLORIDE. [Suspect]
     Active Substance: SUCCINYLCHOLINE CHLORIDE
     Indication: FOETAL EXPOSURE DURING PREGNANCY
     Dosage: DOSAGE FORM: LIQUID INTRAVENOUS
     Route: 042
  48. THIOPENTAL SODIUM. [Suspect]
     Active Substance: THIOPENTAL SODIUM
     Indication: SEIZURE
     Route: 042

REACTIONS (23)
  - Oxygen saturation abnormal [Fatal]
  - Renal ischaemia [Fatal]
  - Seizure [Fatal]
  - Off label use [Not Recovered/Not Resolved]
  - Maternal exposure during pregnancy [Fatal]
  - Diabetes insipidus [Fatal]
  - Foetal death [Fatal]
  - Renal impairment [Fatal]
  - Blood bicarbonate decreased [Fatal]
  - Loss of consciousness [Fatal]
  - Electroencephalogram abnormal [Fatal]
  - PCO2 increased [Fatal]
  - PO2 increased [Fatal]
  - Death [Fatal]
  - Left ventricular dysfunction [Fatal]
  - Blood calcium decreased [Fatal]
  - Status epilepticus [Fatal]
  - Blood magnesium decreased [Fatal]
  - Foetal exposure during pregnancy [Fatal]
  - Hypotension [Fatal]
  - Blood pH decreased [Fatal]
  - Drug ineffective [Fatal]
  - Encephalopathy [Fatal]
